FAERS Safety Report 15255188 (Version 3)
Quarter: 2020Q2

REPORT INFORMATION
  Report Type: Report from Study
  Country: US (occurrence: US)
  Receive Date: 20180808
  Receipt Date: 20200430
  Transmission Date: 20200713
  Serious: Yes (Other)
  Sender: FDA-Public Use
  Company Number: US-SA-2015SA122012

PATIENT
  Age: 46 Year
  Sex: Male

DRUGS (3)
  1. AGALSIDASE BETA [Suspect]
     Active Substance: AGALSIDASE BETA
     Indication: FABRY^S DISEASE
     Dosage: 30 MG, Q4W
     Route: 041
     Dates: start: 20060927
  2. AGALSIDASE BETA [Suspect]
     Active Substance: AGALSIDASE BETA
     Dosage: UNK UNK,QOW
     Route: 041
     Dates: start: 20150812
  3. AGALSIDASE BETA [Suspect]
     Active Substance: AGALSIDASE BETA
     Dosage: DOSE:30.00 FREQUENCY: Q4
     Route: 041
     Dates: start: 20120713

REACTIONS (15)
  - Pain [Unknown]
  - Product use issue [Unknown]
  - Pain [Not Recovered/Not Resolved]
  - Seizure [Recovering/Resolving]
  - Arthritis [Unknown]
  - Dysarthria [Recovering/Resolving]
  - Serum serotonin decreased [Not Recovered/Not Resolved]
  - Oedema peripheral [Not Recovered/Not Resolved]
  - Nephrolithiasis [Recovering/Resolving]
  - Carotid artery stenosis [Recovering/Resolving]
  - Diplopia [Recovering/Resolving]
  - Blood urine present [Recovering/Resolving]
  - Cardiac disorder [Unknown]
  - Depression [Not Recovered/Not Resolved]
  - Transient ischaemic attack [Recovering/Resolving]

NARRATIVE: CASE EVENT DATE: 201806
